FAERS Safety Report 8222865-8 (Version None)
Quarter: 2012Q1

REPORT INFORMATION
  Report Type: 
  Country: None (occurrence: None)
  Receive Date: 20120320
  Receipt Date: 20120313
  Transmission Date: 20120608
  Serious: Yes (Other)
  Sender: FDA-Public Use
  Company Number: US-PFIZER INC-2012008823

PATIENT
  Sex: Female
  Weight: 79.365 kg

DRUGS (9)
  1. MYCOPHENOLATE MOFETIL (CELLCEPT) [Concomitant]
     Indication: SCLERODERMA
  2. ASTELIN [Concomitant]
     Dosage: UNK, 2X/DAY
  3. REVATIO [Suspect]
     Dosage: 20 MG, 3X/DAY
     Dates: end: 20120103
  4. MYCOPHENOLATE MOFETIL (CELLCEPT) [Concomitant]
     Indication: SYSTEMIC LUPUS ERYTHEMATOSUS
     Dosage: 1000 MG, DAILY
  5. REVATIO [Suspect]
     Indication: PULMONARY HYPERTENSION
     Dosage: 20 MG, 3X/DAY
     Route: 048
     Dates: start: 20110527, end: 20111015
  6. FOSAMAX [Concomitant]
     Indication: OSTEOPOROSIS
     Dosage: 70 MG, WEEKLY
     Route: 048
  7. MAVIK [Concomitant]
     Indication: HYPERTENSION
     Dosage: 4 MG, DAILY
  8. KAPIDEX [Concomitant]
     Indication: GASTROOESOPHAGEAL REFLUX DISEASE
     Dosage: 60 MG, DAILY
  9. DEXILANT [Concomitant]
     Dosage: UNK

REACTIONS (3)
  - ANGIOEDEMA [None]
  - UVULITIS [None]
  - OEDEMA [None]
